FAERS Safety Report 12011277 (Version 1)
Quarter: 2016Q1

REPORT INFORMATION
  Report Type: Report from Study
  Country: US (occurrence: US)
  Receive Date: 20160205
  Receipt Date: 20160205
  Transmission Date: 20160526
  Serious: No
  Sender: FDA-Public Use
  Company Number: US-ABBVIE-15K-163-1447522-00

PATIENT
  Age: 29 Year
  Sex: Female

DRUGS (1)
  1. HUMIRA [Suspect]
     Active Substance: ADALIMUMAB
     Indication: PRODUCT USED FOR UNKNOWN INDICATION
     Route: 058
     Dates: start: 20150817

REACTIONS (5)
  - Injection site discolouration [Unknown]
  - Musculoskeletal discomfort [Unknown]
  - Injection site haemorrhage [Unknown]
  - Injection site papule [Unknown]
  - Injection site pain [Unknown]

NARRATIVE: CASE EVENT DATE: 20150817
